FAERS Safety Report 7963788-9 (Version None)
Quarter: 2011Q4

REPORT INFORMATION
  Report Type: 
  Country: None (occurrence: None)
  Receive Date: 20111208
  Receipt Date: 20111121
  Transmission Date: 20120403
  Serious: No
  Sender: FDA-Public Use
  Company Number: US-BAYER-2011-114006

PATIENT

DRUGS (2)
  1. TRAMADOL HCL [Concomitant]
     Indication: ARTHRALGIA
  2. ALEVE (CAPLET) [Suspect]
     Indication: ARTHRALGIA

REACTIONS (1)
  - ARTHRALGIA [None]
